FAERS Safety Report 6525964-1 (Version None)
Quarter: 2010Q1

REPORT INFORMATION
  Report Type: 
  Country: None (occurrence: None)
  Receive Date: 20100104
  Receipt Date: 20091223
  Transmission Date: 20100710
  Serious: Yes (Other)
  Sender: FDA-Public Use
  Company Number: PHHY2009CA58145

PATIENT
  Sex: Female

DRUGS (1)
  1. ZOMETA [Suspect]
     Indication: BREAST CANCER METASTATIC
     Dosage: 3.5 MG EVERY 4 WEEKS
     Route: 042
     Dates: start: 20091008

REACTIONS (7)
  - BLOOD SODIUM DECREASED [None]
  - CARBOHYDRATE ANTIGEN 125 INCREASED [None]
  - HAEMATOCRIT DECREASED [None]
  - HAEMOGLOBIN DECREASED [None]
  - LYMPHOCYTE COUNT DECREASED [None]
  - RED BLOOD CELL COUNT DECREASED [None]
  - RED CELL DISTRIBUTION WIDTH INCREASED [None]
